FAERS Safety Report 10550429 (Version 1)
Quarter: 2014Q4

REPORT INFORMATION
  Report Type: Spontaneous
  Country: US (occurrence: US)
  Receive Date: 20141029
  Receipt Date: 20141029
  Transmission Date: 20150529
  Serious: No
  Sender: FDA-Public Use
  Company Number: US-TEVA-448756USA

PATIENT
  Age: 74 Year
  Sex: Male

DRUGS (3)
  1. MODAFINIL. [Suspect]
     Active Substance: MODAFINIL
     Indication: CENTRAL NERVOUS SYSTEM STIMULATION
     Dosage: 100 MILLIGRAM DAILY;
     Route: 048
  2. ENALAPRIL [Concomitant]
     Active Substance: ENALAPRIL
  3. ISOSORBIDE [Concomitant]
     Active Substance: ISOSORBIDE

REACTIONS (2)
  - Somnolence [Not Recovered/Not Resolved]
  - Drug ineffective [Unknown]

NARRATIVE: CASE EVENT DATE: 20131128
